FAERS Safety Report 4717161-7 (Version None)
Quarter: 2005Q3

REPORT INFORMATION
  Report Type: 
  Country: None (occurrence: None)
  Receive Date: 20050719
  Receipt Date: 20050713
  Transmission Date: 20060218
  Serious: Yes (Death, Hospitalization)
  Sender: FDA-Public Use
  Company Number: GB-GLAXOSMITHKLINE-B0387719A

PATIENT
  Age: 75 Year
  Sex: Male

DRUGS (1)
  1. AVANDAMET [Suspect]
     Dates: start: 20050326

REACTIONS (25)
  - ABDOMINAL TENDERNESS [None]
  - ABNORMAL CLOTTING FACTOR [None]
  - ATHEROSCLEROSIS [None]
  - BILE DUCT STONE [None]
  - CARDIAC ARREST [None]
  - CARDIOMYOPATHY [None]
  - CHOLECYSTITIS ACUTE [None]
  - CHOLECYSTITIS CHRONIC [None]
  - CHOLELITHIASIS [None]
  - CONFUSIONAL STATE [None]
  - DIARRHOEA [None]
  - DIVERTICULUM [None]
  - HEPATIC FAILURE [None]
  - HEPATIC NECROSIS [None]
  - LIVER FUNCTION TEST ABNORMAL [None]
  - MYOCARDIAL ISCHAEMIA [None]
  - PERIPHERAL VASCULAR DISORDER [None]
  - PERITONITIS [None]
  - PULMONARY OEDEMA [None]
  - PYREXIA [None]
  - RASH ERYTHEMATOUS [None]
  - SEPSIS [None]
  - TACHYCARDIA [None]
  - TRACHEOBRONCHITIS [None]
  - VOMITING [None]
